FAERS Safety Report 4858453-0 (Version None)
Quarter: 2005Q4

REPORT INFORMATION
  Report Type: 
  Country: None (occurrence: None)
  Receive Date: 20051219
  Receipt Date: 20050811
  Transmission Date: 20060501
  Serious: No
  Sender: FDA-Public Use
  Company Number: US-GLAXOSMITHKLINE-A0569903A

PATIENT
  Age: 39 Year
  Sex: Female

DRUGS (2)
  1. NICODERM CQ [Suspect]
     Dates: start: 20050811, end: 20050811
  2. NICORETTE [Suspect]

REACTIONS (3)
  - DIZZINESS [None]
  - HEART RATE INCREASED [None]
  - NAUSEA [None]
